FAERS Safety Report 7948408-1 (Version None)
Quarter: 2011Q4

REPORT INFORMATION
  Report Type: 
  Country: None (occurrence: None)
  Receive Date: 20111123
  Receipt Date: 20111114
  Transmission Date: 20120403
  Serious: Yes (Hospitalization)
  Sender: FDA-Public Use
  Company Number: CIP11003050

PATIENT
  Age: 64 Year
  Sex: Female

DRUGS (1)
  1. ACTONEL [Suspect]
     Indication: OSTEOPENIA
     Dosage: 35 MG, 1/WEEK, ORAL
     Route: 048
     Dates: start: 20080101

REACTIONS (2)
  - CONDITION AGGRAVATED [None]
  - VARICOSE ULCERATION [None]
